FAERS Safety Report 17604625 (Version 1)
Quarter: 2020Q1

REPORT INFORMATION
  Report Type: Spontaneous
  Country: US (occurrence: US)
  Receive Date: 20200328
  Receipt Date: 20200328
  Transmission Date: 20200409
  Serious: No
  Sender: FDA-Public Use
  Company Number: None

PATIENT
  Age: 83 Year
  Sex: Female

DRUGS (1)
  1. XELJANZ XR [Suspect]
     Active Substance: TOFACITINIB CITRATE
     Indication: RHEUMATOID ARTHRITIS
     Route: 048
     Dates: start: 20200304, end: 20200305

REACTIONS (6)
  - Eye pruritus [None]
  - Back pain [None]
  - Urticaria [None]
  - Hypersensitivity [None]
  - Pruritus [None]
  - Muscle twitching [None]

NARRATIVE: CASE EVENT DATE: 20200305
